FAERS Safety Report 12649873 (Version 1)
Quarter: 2016Q3

REPORT INFORMATION
  Report Type: Report from Study
  Country: HN (occurrence: HN)
  Receive Date: 20160812
  Receipt Date: 20160812
  Transmission Date: 20161109
  Serious: Yes (Other)
  Sender: FDA-Public Use
  Company Number: PHHY2016HN110550

PATIENT
  Age: 69 Year
  Sex: Male

DRUGS (1)
  1. ULTIBRO BREEZHALER [Suspect]
     Active Substance: GLYCOPYRRONIUM\INDACATEROL
     Indication: PRODUCT USED FOR UNKNOWN INDICATION
     Dosage: INDACATEROL 0.11 MG, GLYCOPYRRONIUM BROMIDE 0.05 MG
     Route: 065
     Dates: start: 20160810

REACTIONS (3)
  - Bronchospasm [Unknown]
  - Infarction [Unknown]
  - Renal failure [Unknown]
